FAERS Safety Report 18762803 (Version 1)
Quarter: 2021Q1

REPORT INFORMATION
  Report Type: Spontaneous
  Country: US (occurrence: US)
  Receive Date: 20210120
  Receipt Date: 20210120
  Transmission Date: 20210419
  Serious: Yes (Other)
  Sender: FDA-Public Use
  Company Number: US-TAKEDA-2021TUS003455

PATIENT
  Sex: Female

DRUGS (9)
  1. NATPARA (PARATHYROID HORMONE) [Suspect]
     Active Substance: PARATHYROID HORMONE
     Indication: HYPOTHYROIDISM
     Route: 065
  2. NATPARA (PARATHYROID HORMONE) [Suspect]
     Active Substance: PARATHYROID HORMONE
     Indication: HYPOTHYROIDISM
     Route: 065
  3. NATPARA (PARATHYROID HORMONE) [Suspect]
     Active Substance: PARATHYROID HORMONE
     Indication: HYPOCALCAEMIA
  4. NATPARA (PARATHYROID HORMONE) [Suspect]
     Active Substance: PARATHYROID HORMONE
     Indication: HYPOTHYROIDISM
     Route: 065
  5. NATPARA (PARATHYROID HORMONE) [Suspect]
     Active Substance: PARATHYROID HORMONE
     Indication: HYPOCALCAEMIA
  6. VITAMIN D [COLECALCIFEROL] [Concomitant]
     Active Substance: CHOLECALCIFEROL
     Indication: HYPOTHYROIDISM
     Dosage: UNK
     Route: 065
  7. NATPARA (PARATHYROID HORMONE) [Suspect]
     Active Substance: PARATHYROID HORMONE
     Indication: HYPOCALCAEMIA
  8. CALCIUM [Concomitant]
     Active Substance: CALCIUM
     Indication: HYPOTHYROIDISM
     Dosage: UNK
     Route: 065
  9. MAGNESIUM [Concomitant]
     Active Substance: MAGNESIUM
     Indication: HYPOTHYROIDISM
     Dosage: UNK
     Route: 065

REACTIONS (2)
  - Quality of life decreased [Unknown]
  - Hypocalcaemia [Unknown]
